FAERS Safety Report 12175099 (Version 1)
Quarter: 2016Q1

REPORT INFORMATION
  Report Type: Spontaneous
  Country: US (occurrence: US)
  Receive Date: 20160314
  Receipt Date: 20160314
  Transmission Date: 20160526
  Serious: No
  Sender: FDA-Public Use
  Company Number: US-BIOGEN-2016BI00192620

PATIENT
  Sex: Female

DRUGS (1)
  1. PLEGRIDY [Suspect]
     Active Substance: PEGINTERFERON BETA-1A
     Indication: MULTIPLE SCLEROSIS
     Route: 058
     Dates: start: 20160113

REACTIONS (5)
  - Exposure via direct contact [Not Recovered/Not Resolved]
  - Motor dysfunction [Unknown]
  - Drug dose omission [Unknown]
  - Contusion [Not Recovered/Not Resolved]
  - Fall [Recovered/Resolved]
